FAERS Safety Report 10372030 (Version 1)
Quarter: 2014Q3

REPORT INFORMATION
  Report Type: Spontaneous
  Country: FR (occurrence: FR)
  Receive Date: 20140808
  Receipt Date: 20140808
  Transmission Date: 20150326
  Serious: Yes (Hospitalization)
  Sender: FDA-Public Use
  Company Number: PHHY2014FR096653

PATIENT
  Age: 82 Year
  Sex: Female

DRUGS (9)
  1. TAREG [Suspect]
     Active Substance: VALSARTAN
     Dosage: 1 DF, QD (40 MG)
     Route: 048
  2. FUROSEMIDE. [Suspect]
     Active Substance: FUROSEMIDE
     Dosage: 40 MG, QD
     Route: 048
  3. KARDEGIC [Concomitant]
     Active Substance: ASPIRIN LYSINE
     Dosage: 75 MG, QD
     Route: 048
  4. LERCANIDIPIN [Concomitant]
     Dosage: 0.5 DF, QD
     Dates: end: 20130820
  5. PRAVASTATIN SODIUM. [Concomitant]
     Active Substance: PRAVASTATIN SODIUM
     Dosage: 20 MG, QD
     Route: 048
  6. MONICOR LP [Suspect]
     Active Substance: ISOSORBIDE MONONITRATE
     Dosage: 40 MG, UNK
     Dates: start: 20131010, end: 20131010
  7. MONICOR LP [Suspect]
     Active Substance: ISOSORBIDE MONONITRATE
     Dosage: 60 MG, UNK
     Dates: start: 20130820
  8. MONICOR LP [Suspect]
     Active Substance: ISOSORBIDE MONONITRATE
     Dosage: 60 MG, UNK
     Dates: start: 20130916
  9. MONICOR LP [Suspect]
     Active Substance: ISOSORBIDE MONONITRATE
     Dosage: 60 MG, QD
     Route: 048

REACTIONS (3)
  - Malaise [Recovered/Resolved with Sequelae]
  - Fall [Recovered/Resolved with Sequelae]
  - Hypotension [Recovered/Resolved with Sequelae]

NARRATIVE: CASE EVENT DATE: 20130820
